FAERS Safety Report 18362466 (Version 4)
Quarter: 2020Q4

REPORT INFORMATION
  Report Type: Report from Study
  Country: CA (occurrence: CA)
  Receive Date: 20201009
  Receipt Date: 20201229
  Transmission Date: 20210114
  Serious: Yes (Hospitalization, Other)
  Sender: FDA-Public Use
  Company Number: CA-ALNYLAM PHARMACEUTICALS, INC.-ALN-2020-001522

PATIENT

DRUGS (10)
  1. VITAMIN A [Concomitant]
     Active Substance: VITAMIN A
     Indication: PROPHYLAXIS
     Dosage: 10000 INTERNATIONAL UNIT, QOD
     Dates: end: 202008
  2. VITAMIN C [Concomitant]
     Active Substance: ASCORBIC ACID
     Indication: PRODUCT USED FOR UNKNOWN INDICATION
     Dosage: 100 MILLIGRAM, TID
     Route: 048
  3. CORTEF [Concomitant]
     Active Substance: HYDROCORTISONE
     Indication: ADRENAL INSUFFICIENCY
     Dosage: 10 MILLIGRAM, BID
     Route: 048
     Dates: start: 20190912
  4. THYROID [Concomitant]
     Active Substance: LEVOTHYROXINE\LIOTHYRONINE
     Indication: HYPOTHYROIDISM
     Dosage: 60 MILLIGRAM, QD
     Route: 048
     Dates: start: 20190912
  5. FLORINEF ACETATE [Concomitant]
     Active Substance: FLUDROCORTISONE ACETATE
     Indication: ADRENAL INSUFFICIENCY
     Dosage: 0.1 MILLIGRAM, QD
     Route: 048
     Dates: start: 20190915
  6. VITAMIN D [Concomitant]
     Active Substance: VITAMIN D NOS
     Indication: PRODUCT USED FOR UNKNOWN INDICATION
     Dosage: UNK, QD
     Route: 048
  7. ONPATTRO [Suspect]
     Active Substance: PATISIRAN SODIUM
     Indication: HEREDITARY NEUROPATHIC AMYLOIDOSIS
     Dosage: 0.3 MILLIGRAM/KILOGRAM, Q3W
     Route: 042
     Dates: start: 20191023
  8. VITAMIN A [Concomitant]
     Active Substance: VITAMIN A
     Dosage: 30000 INTERNATIONAL UNIT, QD
     Route: 048
     Dates: start: 20191021
  9. IRON [Concomitant]
     Active Substance: IRON
     Indication: PRODUCT USED FOR UNKNOWN INDICATION
     Dosage: 20 MILLIGRAM, TID
     Route: 048
  10. TESTOSTERONE. [Concomitant]
     Active Substance: TESTOSTERONE
     Indication: ADRENAL INSUFFICIENCY

REACTIONS (12)
  - Muscular weakness [Unknown]
  - Functional gastrointestinal disorder [Unknown]
  - Hypoaesthesia [Unknown]
  - Wheelchair user [Unknown]
  - Asthenia [Unknown]
  - Dysstasia [Unknown]
  - Fall [Unknown]
  - Ankle fracture [Unknown]
  - Eye disorder [Unknown]
  - Deep vein thrombosis [Not Recovered/Not Resolved]
  - Gait disturbance [Unknown]
  - Medication error [Unknown]

NARRATIVE: CASE EVENT DATE: 20200822
